FAERS Safety Report 7622291-6 (Version None)
Quarter: 2011Q3

REPORT INFORMATION
  Report Type: 
  Country: None (occurrence: None)
  Receive Date: 20110720
  Receipt Date: 20110711
  Transmission Date: 20111222
  Serious: Yes (Death, Other)
  Sender: FDA-Public Use
  Company Number: FR-BAYER-2011-059706

PATIENT
  Age: 73 Year
  Sex: Male

DRUGS (4)
  1. PIPERACILLIN AND TAZOBACTAM [Concomitant]
     Indication: LUNG DISORDER
     Dosage: 4 G, TID
     Route: 042
     Dates: start: 20110520, end: 20110603
  2. NEXIUM [Concomitant]
     Dosage: 40 MG, QD
     Route: 042
     Dates: start: 20110527, end: 20110602
  3. CIPROFLOXACIN [Suspect]
     Indication: LUNG DISORDER
     Dosage: 750 MG, BID
     Route: 042
     Dates: start: 20110520, end: 20110531
  4. METHOTREXATE SODIUM [Concomitant]
     Indication: RHEUMATOID ARTHRITIS
     Dosage: 15 MG, OW
     Route: 058

REACTIONS (2)
  - AGRANULOCYTOSIS [None]
  - THROMBOCYTOPENIA [None]
